FAERS Safety Report 23787331 (Version 3)
Quarter: 2024Q4

REPORT INFORMATION
  Report Type: Spontaneous
  Country: FR (occurrence: FR)
  Receive Date: 20240426
  Receipt Date: 20241213
  Transmission Date: 20250114
  Serious: Yes (Hospitalization, Other)
  Sender: TEVA
  Company Number: None

PATIENT
  Age: 23 Year
  Sex: Male

DRUGS (6)
  1. ALPRAZOLAM [Suspect]
     Active Substance: ALPRAZOLAM
     Indication: Product used for unknown indication
     Dosage: 30 TABLETS/DAY IN THE EVENING
     Route: 048
     Dates: start: 202406
  2. MORPHINE [Suspect]
     Active Substance: MORPHINE
     Indication: Product used for unknown indication
     Dosage: 40 TO 50 MG IN THE EVENING
     Route: 042
     Dates: start: 2018
  3. MORPHINE [Suspect]
     Active Substance: MORPHINE
     Indication: Product used for unknown indication
     Dosage: 40 TO 50 MG IN THE EVENING
     Route: 030
     Dates: start: 2018
  4. TRAMADOL [Suspect]
     Active Substance: TRAMADOL
     Indication: Product used for unknown indication
     Dosage: 30 TABLETS OF 50 MG THROUGHOUT THE DAY, TRAMADOL BASE
     Route: 048
     Dates: start: 202011
  5. ZOLPIDEM [Suspect]
     Active Substance: ZOLPIDEM TARTRATE
     Indication: Product used for unknown indication
     Dosage: 3 TO 20 TABLETS/DAY
     Route: 048
     Dates: start: 202301
  6. KETAMINE [Suspect]
     Active Substance: KETAMINE
     Indication: Product used for unknown indication
     Dosage: 300MG 1 TO 3 TIMES/D
     Route: 030
     Dates: start: 202401

REACTIONS (3)
  - Seizure [Recovered/Resolved]
  - Drug use disorder [Not Recovered/Not Resolved]
  - Product use in unapproved indication [Not Recovered/Not Resolved]

NARRATIVE: CASE EVENT DATE: 20241120
